FAERS Safety Report 7170952-8 (Version None)
Quarter: 2010Q4

REPORT INFORMATION
  Report Type: 
  Country: None (occurrence: None)
  Receive Date: 20101123
  Receipt Date: 20100816
  Transmission Date: 20110411
  Serious: No
  Sender: FDA-Public Use
  Company Number: 017401

PATIENT
  Sex: Male
  Weight: 78.5 kg

DRUGS (3)
  1. CIMZIA [Suspect]
     Indication: CROHN'S DISEASE
     Dosage: (SUBCUTANEOUS)
     Route: 058
     Dates: start: 20100526
  2. ENTOCORT EC [Concomitant]
  3. SYNTHROID [Concomitant]

REACTIONS (5)
  - FURUNCLE [None]
  - HEADACHE [None]
  - LIMB INJURY [None]
  - RASH [None]
  - VISION BLURRED [None]
